FAERS Safety Report 13095883 (Version 1)
Quarter: 2017Q1

REPORT INFORMATION
  Report Type: Report from Study
  Country: None (occurrence: US)
  Receive Date: 20170109
  Receipt Date: 20170109
  Transmission Date: 20170428
  Serious: Yes (Other)
  Sender: FDA-Public Use
  Company Number: US-ABBVIE-17K-163-1827441-00

PATIENT
  Age: 70 Year
  Sex: Female

DRUGS (5)
  1. HUMIRA [Suspect]
     Active Substance: ADALIMUMAB
     Route: 058
     Dates: end: 20161022
  2. ARAVA [Concomitant]
     Active Substance: LEFLUNOMIDE
     Indication: RHEUMATOID ARTHRITIS
  3. HUMIRA [Suspect]
     Active Substance: ADALIMUMAB
     Route: 058
     Dates: start: 2006
  4. CELLCEPT [Suspect]
     Active Substance: MYCOPHENOLATE MOFETIL\MYCOPHENOLATE MOFETIL HYDROCHLORIDE
     Indication: PULMONARY FIBROSIS
     Route: 065
     Dates: start: 2013, end: 2014
  5. HUMIRA [Suspect]
     Active Substance: ADALIMUMAB
     Indication: RHEUMATOID ARTHRITIS
     Route: 058
     Dates: start: 2004, end: 2006

REACTIONS (11)
  - Joint stiffness [Not Recovered/Not Resolved]
  - Drug ineffective [Not Recovered/Not Resolved]
  - Arthralgia [Not Recovered/Not Resolved]
  - Dysphonia [Not Recovered/Not Resolved]
  - Dyspepsia [Recovered/Resolved]
  - Rheumatoid arthritis [Unknown]
  - Rheumatoid arthritis [Recovered/Resolved]
  - Post procedural complication [Unknown]
  - Pulmonary fibrosis [Not Recovered/Not Resolved]
  - Infection [Not Recovered/Not Resolved]
  - Tarsal tunnel syndrome [Recovered/Resolved with Sequelae]

NARRATIVE: CASE EVENT DATE: 2006
